FAERS Safety Report 13759681 (Version 2)
Quarter: 2017Q3

REPORT INFORMATION
  Report Type: Spontaneous
  Country: JP (occurrence: JP)
  Receive Date: 20170717
  Receipt Date: 20170803
  Transmission Date: 20171127
  Serious: Yes (Other)
  Sender: FDA-Public Use
  Company Number: JP-PFIZER INC-2017306179

PATIENT

DRUGS (1)
  1. AZULFIDINE EN-TABS [Suspect]
     Active Substance: SULFASALAZINE

REACTIONS (5)
  - Interstitial lung disease [Unknown]
  - Liver disorder [Unknown]
  - Rash [Unknown]
  - Pleural effusion [Unknown]
  - Renal disorder [Unknown]
